FAERS Safety Report 6981723-7 (Version None)
Quarter: 2010Q3

REPORT INFORMATION
  Report Type: 
  Country: None (occurrence: None)
  Receive Date: 20100914
  Receipt Date: 20091016
  Transmission Date: 20110219
  Serious: Yes (Other)
  Sender: FDA-Public Use
  Company Number: US-PFIZER INC-2009262733

PATIENT
  Sex: Female
  Weight: 97.506 kg

DRUGS (6)
  1. LYRICA [Suspect]
     Indication: FIBROMYALGIA
     Dosage: UNK
     Route: 048
     Dates: start: 20070501
  2. CYMBALTA [Concomitant]
  3. HYDROXYCHLOROQUINE [Concomitant]
  4. PROTONIX [Concomitant]
  5. AMBIEN CR [Concomitant]
  6. SINGULAIR [Concomitant]

REACTIONS (4)
  - HYPERTENSION [None]
  - PAIN [None]
  - RHEUMATOID FACTOR POSITIVE [None]
  - WEIGHT INCREASED [None]
